FAERS Safety Report 12704495 (Version 1)
Quarter: 2016Q3

REPORT INFORMATION
  Report Type: Spontaneous
  Country: IT (occurrence: IT)
  Receive Date: 20160831
  Receipt Date: 20160831
  Transmission Date: 20161109
  Serious: Yes (Hospitalization)
  Sender: FDA-Public Use
  Company Number: IT-FRESENIUS KABI-FK201605962

PATIENT
  Age: 60 Year
  Sex: Female

DRUGS (2)
  1. DENOSUMAB [Suspect]
     Active Substance: DENOSUMAB
     Indication: METASTASES TO BONE
     Route: 065
     Dates: start: 20150102
  2. ZOLEDRONIC ACID (MANUFACTURER UNKNOWN) [Suspect]
     Active Substance: ZOLEDRONIC ACID
     Indication: METASTASES TO BONE
     Route: 042
     Dates: start: 20140901, end: 20150101

REACTIONS (3)
  - Oedema mucosal [Recovering/Resolving]
  - Fistula [Recovering/Resolving]
  - Dysaesthesia [Recovering/Resolving]

NARRATIVE: CASE EVENT DATE: 20151109
